FAERS Safety Report 20367650 (Version 2)
Quarter: 2022Q2

REPORT INFORMATION
  Report Type: Spontaneous
  Country: US (occurrence: US)
  Receive Date: 20220124
  Receipt Date: 20220407
  Transmission Date: 20220721
  Serious: No
  Sender: FDA-Public Use
  Company Number: US-BIOGEN-2021BI01075999

PATIENT
  Sex: Female

DRUGS (1)
  1. TYSABRI [Suspect]
     Active Substance: NATALIZUMAB
     Indication: Multiple sclerosis
     Route: 065
     Dates: start: 20210609

REACTIONS (11)
  - Cognitive disorder [Not Recovered/Not Resolved]
  - Band sensation [Not Recovered/Not Resolved]
  - Central nervous system lesion [Unknown]
  - Cystitis [Unknown]
  - Kidney infection [Unknown]
  - Lung disorder [Unknown]
  - Pain in extremity [Not Recovered/Not Resolved]
  - Dyspnoea [Recovered/Resolved]
  - Chest discomfort [Unknown]
  - Depression [Not Recovered/Not Resolved]
  - Urinary tract infection [Unknown]
